FAERS Safety Report 9536774 (Version 2)
Quarter: 2018Q1

REPORT INFORMATION
  Report Type: Spontaneous
  Country: FR (occurrence: FR)
  Receive Date: 20130919
  Receipt Date: 20180327
  Transmission Date: 20180509
  Serious: Yes (Death, Hospitalization)
  Sender: FDA-Public Use
  Company Number: FR-SANOFI-AVENTIS-2013SA092021

PATIENT
  Age: 50 Year
  Sex: Female
  Weight: 57 kg

DRUGS (3)
  1. OXALIPLATIN. [Suspect]
     Active Substance: OXALIPLATIN
     Indication: COLON CANCER
     Route: 041
     Dates: start: 20130910, end: 20130910
  2. FLUOROURACILE [Suspect]
     Active Substance: FLUOROURACIL
     Indication: COLON CANCER
     Route: 041
     Dates: start: 20130910, end: 20130912
  3. FLUOROURACILE [Suspect]
     Active Substance: FLUOROURACIL
     Indication: COLON CANCER
     Route: 041
     Dates: start: 20130910, end: 20130910

REACTIONS (6)
  - Stress cardiomyopathy [Fatal]
  - Acute pulmonary oedema [Fatal]
  - Acute coronary syndrome [Fatal]
  - Dyspnoea [Fatal]
  - Chest pain [Fatal]
  - Malaise [Fatal]

NARRATIVE: CASE EVENT DATE: 20130913
